FAERS Safety Report 4766051-2 (Version None)
Quarter: 2005Q3

REPORT INFORMATION
  Report Type: 
  Country: None (occurrence: None)
  Receive Date: 20050912
  Receipt Date: 20050907
  Transmission Date: 20060218
  Serious: Yes (Death, Hospitalization)
  Sender: FDA-Public Use
  Company Number: HCM-0118

PATIENT
  Age: 63 Year
  Sex: Male

DRUGS (13)
  1. TOPOTECAN [Suspect]
     Indication: SMALL CELL LUNG CANCER STAGE UNSPECIFIED
     Dosage: 1.3MG PER DAY
     Route: 065
     Dates: start: 20041108, end: 20041208
  2. AMRUBICIN HYDROCHLORIDE [Suspect]
     Indication: SMALL CELL LUNG CANCER STAGE UNSPECIFIED
     Dosage: 67MG PER DAY
     Route: 042
     Dates: start: 20041108, end: 20041208
  3. LENOGRASTIM [Concomitant]
     Dosage: 100UG PER DAY
     Route: 042
     Dates: start: 20041112, end: 20041130
  4. GRANISETRON  HCL [Concomitant]
     Dates: start: 20041108, end: 20041208
  5. MAGNESIUM OXIDE [Concomitant]
     Dosage: 180MG PER DAY
     Route: 048
     Dates: start: 20041108, end: 20041208
  6. CLARITHROMYCIN [Concomitant]
     Dosage: 400MG PER DAY
     Route: 048
     Dates: start: 20041118, end: 20041208
  7. CARBAZOCHROME SODIUM SULFONATE [Concomitant]
     Dosage: 30MG PER DAY
     Dates: start: 20041108, end: 20041208
  8. TRANEXAMIC ACID [Concomitant]
     Dosage: 750MG PER DAY
     Route: 048
     Dates: start: 20041108, end: 20041208
  9. LEVOFLOXACIN [Concomitant]
     Dosage: 300MG PER DAY
     Route: 048
     Dates: start: 20041108, end: 20041208
  10. RIFAMPICIN [Concomitant]
     Dosage: 450MG PER DAY
     Route: 048
     Dates: start: 20041108, end: 20041208
  11. ETHAMBUTOL HCL [Concomitant]
     Dosage: 3000MG PER DAY
     Route: 048
     Dates: start: 20041108, end: 20041208
  12. METOCLOPRAMIDE [Concomitant]
     Dosage: 30MG PER DAY
     Route: 048
     Dates: start: 20041108, end: 20041208
  13. PROCHLORPERAZINE MALEATE [Concomitant]
     Dosage: 15MG PER DAY
     Route: 048
     Dates: start: 20041108, end: 20041208

REACTIONS (5)
  - HAEMOGLOBIN DECREASED [None]
  - LUNG NEOPLASM [None]
  - NEUTROPENIA [None]
  - PLATELET COUNT DECREASED [None]
  - SMALL CELL LUNG CANCER STAGE UNSPECIFIED [None]
